FAERS Safety Report 6297528-9 (Version None)
Quarter: 2009Q3

REPORT INFORMATION
  Report Type: 
  Country: None (occurrence: None)
  Receive Date: 20090804
  Receipt Date: 20090804
  Transmission Date: 20100115
  Serious: Yes (Hospitalization)
  Sender: FDA-Public Use
  Company Number: None

PATIENT
  Age: 79 Year
  Sex: Male
  Weight: 69.9 kg

DRUGS (2)
  1. FLUDROCORTISONE [Suspect]
     Indication: ADRENAL INSUFFICIENCY
     Dosage: 0.1 MG EVERY DAY PO
     Route: 048
     Dates: start: 20090611, end: 20090729
  2. HYDROCHLOROTHIAZIDE [Suspect]
     Indication: HYPERTENSION
     Dosage: 25 MG EVERY DAY PO
     Route: 048
     Dates: start: 20070206, end: 20090729

REACTIONS (2)
  - ASTHENIA [None]
  - HYPOKALAEMIA [None]
